FAERS Safety Report 15149088 (Version 1)
Quarter: 2018Q3

REPORT INFORMATION
  Report Type: Spontaneous
  Country: US (occurrence: US)
  Receive Date: 20180716
  Receipt Date: 20180716
  Transmission Date: 20181010
  Serious: No
  Sender: FDA-Public Use
  Company Number: US-SHIRE-US201825430

PATIENT
  Age: 51 Year
  Sex: Female

DRUGS (1)
  1. HYQVIA [Suspect]
     Active Substance: HUMAN IMMUNOGLOBULIN G\HYALURONIDASE RECOMBINANT HUMAN
     Indication: INFUSION SITE PAIN
     Dosage: 12.5 G, OTHER
     Route: 058
     Dates: start: 20180322

REACTIONS (2)
  - Pain [Recovered/Resolved]
  - Anxiety [Recovered/Resolved]

NARRATIVE: CASE EVENT DATE: 20180322
